FAERS Safety Report 18035699 (Version 1)
Quarter: 2020Q3

REPORT INFORMATION
  Report Type: Spontaneous
  Country: US (occurrence: US)
  Receive Date: 20200716
  Receipt Date: 20200716
  Transmission Date: 20201103
  Serious: No
  Sender: FDA-Public Use
  Company Number: None

PATIENT
  Age: 25 Year
  Sex: Male

DRUGS (1)
  1. INFLIXIMAB?DYYB (INFLIXIMAB?DYYB 100MG/VIL INJ, LYPHL) [Suspect]
     Active Substance: INFLIXIMAB-DYYB
     Indication: CROHN^S DISEASE
     Dates: start: 20181220, end: 20181220

REACTIONS (2)
  - Hot flush [None]
  - Flank pain [None]

NARRATIVE: CASE EVENT DATE: 20181220
